FAERS Safety Report 18490675 (Version 1)
Quarter: 2020Q4

REPORT INFORMATION
  Report Type: Spontaneous
  Country: US (occurrence: US)
  Receive Date: 20201111
  Receipt Date: 20201111
  Transmission Date: 20210114
  Serious: Yes (Other)
  Sender: FDA-Public Use
  Company Number: None

PATIENT
  Age: 86 Year
  Sex: Male
  Weight: 72.72 kg

DRUGS (10)
  1. AMLODIPINE [Concomitant]
     Active Substance: AMLODIPINE BESYLATE
  2. LOSARTAN. [Concomitant]
     Active Substance: LOSARTAN
  3. MULTIVITAMIN [Concomitant]
     Active Substance: VITAMINS
  4. TOUJEO [Concomitant]
     Active Substance: INSULIN GLARGINE
  5. VITAMIN B12 [Concomitant]
     Active Substance: CYANOCOBALAMIN
  6. NUBEQA [Suspect]
     Active Substance: DAROLUTAMIDE
     Indication: PROSTATE CANCER
     Route: 048
     Dates: start: 20191112, end: 20200107
  7. CALCIUM [Concomitant]
     Active Substance: CALCIUM
  8. FOLIC ACID. [Concomitant]
     Active Substance: FOLIC ACID
  9. HUMALOG KWIKPEN [Concomitant]
     Active Substance: INSULIN LISPRO
  10. ELIGARD [Concomitant]
     Active Substance: LEUPROLIDE ACETATE

REACTIONS (1)
  - Hepatitis [None]

NARRATIVE: CASE EVENT DATE: 20200107
